FAERS Safety Report 5728150-8 (Version None)
Quarter: 2008Q2

REPORT INFORMATION
  Report Type: 
  Country: None (occurrence: None)
  Receive Date: 20080505
  Receipt Date: 20080428
  Transmission Date: 20081010
  Serious: Yes (Death, Hospitalization)
  Sender: FDA-Public Use
  Company Number: US-GILEAD-2008-0015932

PATIENT
  Sex: Male
  Weight: 124.4 kg

DRUGS (9)
  1. LETAIRIS [Suspect]
  2. ACTIGALL [Concomitant]
  3. NEORAL [Concomitant]
  4. NORVASC [Concomitant]
  5. FOLIC ACID [Concomitant]
  6. RAPAMUNE [Concomitant]
  7. FLOMAX [Concomitant]
  8. METOPROLOL TARTRATE [Concomitant]
  9. ALDACTONE [Concomitant]

REACTIONS (2)
  - RENAL FAILURE ACUTE [None]
  - SHOCK [None]
